FAERS Safety Report 10542545 (Version 1)
Quarter: 2014Q4

REPORT INFORMATION
  Report Type: Spontaneous
  Country: US (occurrence: None)
  Receive Date: 20141023
  Receipt Date: 20141023
  Transmission Date: 20150529
  Serious: Yes (Other)
  Sender: FDA-Public Use
  Company Number: None

PATIENT
  Age: 19 Year
  Sex: Male
  Weight: 56.25 kg

DRUGS (2)
  1. CARBAMAZEPINE ER [Concomitant]
     Active Substance: CARBAMAZEPINE
  2. QUETIAPINE FUMARATE. [Suspect]
     Active Substance: QUETIAPINE FUMARATE
     Indication: AFFECTIVE DISORDER
     Dosage: 1 PILL
     Route: 048
     Dates: start: 20140923, end: 20141022

REACTIONS (1)
  - Headache [None]

NARRATIVE: CASE EVENT DATE: 20141017
